FAERS Safety Report 19591730 (Version 3)
Quarter: 2023Q2

REPORT INFORMATION
  Report Type: Spontaneous
  Country: JP (occurrence: JP)
  Receive Date: 20210721
  Receipt Date: 20230607
  Transmission Date: 20230722
  Serious: Yes (Hospitalization, Other)
  Sender: FDA-Public Use
  Company Number: JP-MSD-M2021-15456

PATIENT
  Age: 58 Year
  Sex: Male

DRUGS (4)
  1. KEYTRUDA [Suspect]
     Active Substance: PEMBROLIZUMAB
     Indication: Oropharyngeal cancer recurrent
     Dosage: 200 MILLIGRAM, Q3W
     Route: 041
     Dates: start: 202005, end: 2020
  2. KEYTRUDA [Suspect]
     Active Substance: PEMBROLIZUMAB
     Dosage: 400 MILLIGRAM, EVERY 6 WEEKS
     Route: 041
     Dates: start: 2020, end: 2021
  3. FLUOROURACIL [Concomitant]
     Active Substance: FLUOROURACIL
     Indication: Oropharyngeal cancer recurrent
     Dosage: 1000 MG/M2/DAY,ON DAYS 1 TO 4 EVERY 3 WEEKS
     Route: 065
     Dates: start: 202005, end: 2020
  4. CISPLATIN [Concomitant]
     Active Substance: CISPLATIN
     Indication: Oropharyngeal cancer recurrent
     Dosage: 100 MILLIGRAM/SQ. METER, Q3W
     Route: 065
     Dates: start: 202005, end: 2020

REACTIONS (2)
  - Immune-mediated gastritis [Recovering/Resolving]
  - Immune-mediated hepatitis [Recovering/Resolving]

NARRATIVE: CASE EVENT DATE: 20210101
